FAERS Safety Report 6150819-4 (Version None)
Quarter: 2009Q2

REPORT INFORMATION
  Report Type: 
  Country: None (occurrence: None)
  Receive Date: 20090408
  Receipt Date: 20090320
  Transmission Date: 20091009
  Serious: Yes (Hospitalization)
  Sender: FDA-Public Use
  Company Number: 2009AL001686

PATIENT
  Age: 58 Year
  Sex: Male

DRUGS (17)
  1. DIGOXIN [Suspect]
     Dosage: 0.125MG, DAILY, PO
     Route: 048
  2. PENTASA [Concomitant]
  3. TYLENOL [Concomitant]
  4. ZOLOFT [Concomitant]
  5. ZOCOR [Concomitant]
  6. IMDUR [Concomitant]
  7. VIOXX [Concomitant]
  8. ACCOLATE [Concomitant]
  9. ZITHROMAX [Concomitant]
  10. METOPROLOL TARTRATE [Concomitant]
  11. LOTENSIN [Concomitant]
  12. PEPCID [Concomitant]
  13. GLUCOPHAGE [Concomitant]
  14. PLAVIX [Concomitant]
  15. ADVAIR HFA [Concomitant]
  16. ASPIRIN [Concomitant]
  17. XOPENEX [Concomitant]

REACTIONS (20)
  - ABDOMINAL PAIN UPPER [None]
  - APHASIA [None]
  - ASTHENIA [None]
  - CEREBROVASCULAR ACCIDENT [None]
  - COLD SWEAT [None]
  - CONFUSIONAL STATE [None]
  - DIABETES MELLITUS INADEQUATE CONTROL [None]
  - ECONOMIC PROBLEM [None]
  - EMOTIONAL DISTRESS [None]
  - HEADACHE [None]
  - HYPERTENSION [None]
  - IMPAIRED WORK ABILITY [None]
  - INJURY [None]
  - MEMORY IMPAIRMENT [None]
  - MUSCULOSKELETAL CHEST PAIN [None]
  - PAIN [None]
  - PNEUMONIA [None]
  - PRODUCTIVE COUGH [None]
  - SPEECH DISORDER [None]
  - WEIGHT DECREASED [None]
